FAERS Safety Report 16358102 (Version 1)
Quarter: 2019Q2

REPORT INFORMATION
  Report Type: Spontaneous
  Country: US (occurrence: US)
  Receive Date: 20190527
  Receipt Date: 20190527
  Transmission Date: 20190711
  Serious: Yes (Disabling, Other)
  Sender: FDA-Public Use
  Company Number: US-PFIZER INC-2019218318

PATIENT
  Age: 69 Year
  Sex: Male

DRUGS (1)
  1. ZOLEDRONIC ACID [Suspect]
     Active Substance: ZOLEDRONIC ACID
     Indication: PLASMA CELL MYELOMA
     Dosage: UNK, EVERY 3 MONTHS (INFUSION EVERY 3 MONTHS FOR 4 YEARS)
     Route: 042

REACTIONS (5)
  - Oroantral fistula [Unknown]
  - Osteomyelitis [Unknown]
  - Actinomycosis [Unknown]
  - Blindness [Not Recovered/Not Resolved]
  - Osteonecrosis of jaw [Unknown]
